FAERS Safety Report 9678142 (Version 1)
Quarter: 2013Q4

REPORT INFORMATION
  Report Type: Spontaneous
  Country: US (occurrence: None)
  Receive Date: 20131106
  Receipt Date: 20131106
  Transmission Date: 20140711
  Serious: Yes (Hospitalization)
  Sender: FDA-Public Use
  Company Number: UTC-039937

PATIENT
  Age: 76 Year
  Sex: Female
  Weight: 88.7 kg

DRUGS (1)
  1. REMODULIN [Suspect]
     Indication: PULMONARY ARTERIAL HYPERTENSION
     Dosage: 8.64 UG/KG ( 0.006 UG/KG, 1 IN 1 MIN), SUBCUTANEOUS
     Route: 058
     Dates: start: 20131017, end: 201310

REACTIONS (4)
  - Headache [None]
  - Hypertension [None]
  - Nausea [None]
  - Drug intolerance [None]
